FAERS Safety Report 25475756 (Version 1)
Quarter: 2025Q2

REPORT INFORMATION
  Report Type: Spontaneous
  Country: US (occurrence: US)
  Receive Date: 20250624
  Receipt Date: 20250624
  Transmission Date: 20250717
  Serious: Yes (Other)
  Sender: AMGEN
  Company Number: US-AMGEN-USASP2025121901

PATIENT
  Age: 26 Year
  Sex: Male

DRUGS (5)
  1. INTERFERON GAMMA-1B [Suspect]
     Active Substance: INTERFERON GAMMA-1B
     Indication: Disseminated coccidioidomycosis
     Dosage: 50 MICROGRAM/SQ. METER, 3 TIMES/WK
     Route: 058
  2. INTERFERON GAMMA-1B [Suspect]
     Active Substance: INTERFERON GAMMA-1B
     Dosage: 60 MICROGRAM/SQ. METER, 3 TIMES/WK
     Route: 058
  3. AMPHOTERICIN B [Concomitant]
     Active Substance: AMPHOTERICIN B
  4. VORICONAZOLE [Concomitant]
     Active Substance: VORICONAZOLE
  5. MICAFUNGIN [Concomitant]
     Active Substance: MICAFUNGIN SODIUM

REACTIONS (4)
  - Disseminated coccidioidomycosis [Unknown]
  - Drug ineffective for unapproved indication [Unknown]
  - Off label use [Unknown]
  - Pyrexia [Unknown]
